FAERS Safety Report 21017803 (Version 1)
Quarter: 2022Q3

REPORT INFORMATION
  Report Type: Report from Study
  Country: US (occurrence: US)
  Receive Date: 20220628
  Receipt Date: 20220628
  Transmission Date: 20221026
  Serious: Yes (Other)
  Sender: FDA-Public Use
  Company Number: US-NOVARTISPH-NVSC2022US144285

PATIENT
  Age: 55 Year
  Sex: Male

DRUGS (4)
  1. OXALIPLATIN [Suspect]
     Active Substance: OXALIPLATIN
     Indication: Ductal adenocarcinoma of pancreas
     Dosage: UNK [FOLFIRINOX  CHEMO REGIMEN]
     Route: 065
  2. LEUCOVORIN [Suspect]
     Active Substance: LEUCOVORIN
     Indication: Ductal adenocarcinoma of pancreas
     Dosage: UNK[FOLFIRINOX  CHEMO REGIMEN]
     Route: 065
  3. FLUOROURACIL [Suspect]
     Active Substance: FLUOROURACIL
     Indication: Ductal adenocarcinoma of pancreas
     Dosage: UNK [FOLFIRINOX  CHEMO REGIMEN]
     Route: 065
  4. IRINOTECAN [Suspect]
     Active Substance: IRINOTECAN
     Indication: Ductal adenocarcinoma of pancreas
     Dosage: UNK [FOLFIRINOX  CHEMO REGIMEN]
     Route: 065

REACTIONS (2)
  - Neutropenia [Recovering/Resolving]
  - Product use in unapproved indication [Unknown]
